FAERS Safety Report 16361174 (Version 1)
Quarter: 2019Q3

REPORT INFORMATION
  Report Type: Spontaneous
  Country: US (occurrence: US)
  Receive Date: 20190524
  Receipt Date: 20190524
  Transmission Date: 20191004
  Serious: Yes (Disabling)
  Sender: FDA-Public Use
  Company Number: None

PATIENT
  Age: 43 Year
  Sex: Female
  Weight: 60.3 kg

DRUGS (1)
  1. LEVOFLOXACIN. [Suspect]
     Active Substance: LEVOFLOXACIN
     Indication: BACTERIAL COLITIS
     Dosage: ?          QUANTITY:1 CAPSULE(S);?
     Route: 048
     Dates: start: 20190408, end: 20190413

REACTIONS (27)
  - Cough [None]
  - Inflammation [None]
  - Drug ineffective [None]
  - Pain in extremity [None]
  - Pyrexia [None]
  - Rash generalised [None]
  - Pupillary deformity [None]
  - Feeling cold [None]
  - Neuralgia [None]
  - Dehydration [None]
  - Dizziness [None]
  - Cluster headache [None]
  - Peripheral swelling [None]
  - Chills [None]
  - Insomnia [None]
  - Muscle twitching [None]
  - Chest pain [None]
  - Joint range of motion decreased [None]
  - Paraesthesia [None]
  - Arthralgia [None]
  - Diarrhoea [None]
  - Vision blurred [None]
  - Tendon discomfort [None]
  - Allodynia [None]
  - Vomiting [None]
  - Product administration error [None]
  - Myalgia [None]

NARRATIVE: CASE EVENT DATE: 20190408
